FAERS Safety Report 17774339 (Version 1)
Quarter: 2020Q2

REPORT INFORMATION
  Report Type: Spontaneous
  Country: US (occurrence: US)
  Receive Date: 20200512
  Receipt Date: 20200512
  Transmission Date: 20200714
  Serious: No
  Sender: FDA-Public Use
  Company Number: None

PATIENT
  Age: 43 Year
  Sex: Female

DRUGS (14)
  1. LISINOPRIL. [Concomitant]
     Active Substance: LISINOPRIL
  2. ATROVASTATIN [Concomitant]
     Active Substance: ATORVASTATIN CALCIUM
  3. OMEPRAZOLE. [Concomitant]
     Active Substance: OMEPRAZOLE
  4. AMITRIPTYLINE [Concomitant]
     Active Substance: AMITRIPTYLINE
  5. BUPROPION. [Concomitant]
     Active Substance: BUPROPION
  6. COSENTYX [Suspect]
     Active Substance: SECUKINUMAB
     Indication: PSORIASIS
     Dosage: ?          OTHER FREQUENCY:EVERY 4 WEEKS;?
     Route: 058
     Dates: start: 20191031
  7. DOCUSATE SODIUM. [Concomitant]
     Active Substance: DOCUSATE SODIUM
  8. DOTTI [Concomitant]
     Active Substance: ESTRADIOL
  9. METFORMIN [Concomitant]
     Active Substance: METFORMIN HYDROCHLORIDE
  10. ASPIRIN. [Concomitant]
     Active Substance: ASPIRIN
  11. NALTREXONE [Concomitant]
     Active Substance: NALTREXONE
  12. GABAPENTIN. [Concomitant]
     Active Substance: GABAPENTIN
  13. COLESTIPOL [Concomitant]
     Active Substance: COLESTIPOL
  14. VERAPAMIL [Concomitant]
     Active Substance: VERAPAMIL HYDROCHLORIDE

REACTIONS (1)
  - Cerebrovascular accident [None]
